FAERS Safety Report 15791021 (Version 1)
Quarter: 2019Q1

REPORT INFORMATION
  Report Type: Spontaneous
  Country: SK (occurrence: SK)
  Receive Date: 20190104
  Receipt Date: 20190104
  Transmission Date: 20190417
  Serious: Yes (Other)
  Sender: FDA-Public Use
  Company Number: SK-MYLANLABS-2018M1097861

PATIENT
  Age: 34 Year
  Sex: Female

DRUGS (5)
  1. TRETINOIN. [Suspect]
     Active Substance: TRETINOIN
     Dosage: 45 MG/DAY; D. 1-15
  2. IDARUBICIN [Suspect]
     Active Substance: IDARUBICIN
     Indication: PRODUCT USED FOR UNKNOWN INDICATION
     Dosage: 12 MG/M?/DAY; D 2, 4, 6, 8
  3. IDARUBICIN [Suspect]
     Active Substance: IDARUBICIN
     Dosage: 5 MG/M?/DAY, D. 1-4
  4. ARA-CELL [Suspect]
     Active Substance: CYTARABINE
     Indication: PRODUCT USED FOR UNKNOWN INDICATION
     Dosage: 1000 MG/M2/DAY, D.1-4
  5. TRETINOIN. [Suspect]
     Active Substance: TRETINOIN
     Indication: ACUTE PROMYELOCYTIC LEUKAEMIA
     Dosage: 45 MG/M?/DAY; D. 1 - TILL COMPLETE REMISSION

REACTIONS (6)
  - Ileus paralytic [Unknown]
  - Mucosal inflammation [Unknown]
  - Enterocolitis [Unknown]
  - Pancytopenia [Unknown]
  - Pneumonia [Unknown]
  - Respiratory failure [Unknown]
